FAERS Safety Report 16707456 (Version 12)
Quarter: 2022Q1

REPORT INFORMATION
  Report Type: Spontaneous
  Country: US (occurrence: US)
  Receive Date: 20190815
  Receipt Date: 20220217
  Transmission Date: 20220424
  Serious: Yes (Hospitalization, Other)
  Sender: FDA-Public Use
  Company Number: US-PFIZER INC-2019348343

PATIENT
  Age: 77 Year
  Sex: Female
  Weight: 55 kg

DRUGS (4)
  1. XELJANZ [Suspect]
     Active Substance: TOFACITINIB CITRATE
     Indication: Rheumatoid arthritis
     Dosage: 5 MG, 2X/DAY
     Dates: start: 201907
  2. XELJANZ [Suspect]
     Active Substance: TOFACITINIB CITRATE
     Dosage: 5 MG, 2X/DAY
     Route: 048
     Dates: start: 20190809, end: 20210725
  3. METHOTREXATE [Concomitant]
     Active Substance: METHOTREXATE
     Indication: Inflammation
     Dosage: 17.5 MG, WEEKLY
     Route: 048
  4. PREDNISONE [Concomitant]
     Active Substance: PREDNISONE
     Indication: Pain
     Dosage: 4 MG, DAILY
     Route: 048

REACTIONS (5)
  - Cough [Not Recovered/Not Resolved]
  - Mental impairment [Unknown]
  - Hypersensitivity [Not Recovered/Not Resolved]
  - Herpes zoster [Unknown]
  - Osteoporosis [Unknown]
